FAERS Safety Report 18233541 (Version 2)
Quarter: 2020Q4

REPORT INFORMATION
  Report Type: Report from Study
  Country: None (occurrence: US)
  Receive Date: 20200904
  Receipt Date: 20201027
  Transmission Date: 20210113
  Serious: Yes (Other)
  Sender: FDA-Public Use
  Company Number: US-ABBVIE-20K-163-3545666-00

PATIENT
  Age: 59 Year
  Sex: Female
  Weight: 54.03 kg

DRUGS (1)
  1. HUMIRA [Suspect]
     Active Substance: ADALIMUMAB
     Indication: HIDRADENITIS
     Route: 058
     Dates: start: 201806, end: 20201020

REACTIONS (4)
  - Suicide threat [Unknown]
  - Pain [Unknown]
  - Feeling of despair [Not Recovered/Not Resolved]
  - Anxiety [Unknown]

NARRATIVE: CASE EVENT DATE: 20200827
